FAERS Safety Report 8512920-7 (Version None)
Quarter: 2012Q3

REPORT INFORMATION
  Report Type: 
  Country: None (occurrence: None)
  Receive Date: 20120705
  Receipt Date: 20120619
  Transmission Date: 20120928
  Serious: Yes (Death)
  Sender: FDA-Public Use
  Company Number: FK201102562

PATIENT
  Age: 3 Year
  Sex: Female

DRUGS (16)
  1. SOLU DECORTIN H (PREDNISOLONE SODIUM SUCCINATE) [Concomitant]
  2. ELOMEL PAD (ELOMEL) [Concomitant]
  3. SUFENTANIL CITRATE [Concomitant]
  4. ROCURONIUM BROMIDE [Concomitant]
  5. ACETAMINOPHEN [Concomitant]
  6. DIPIDOLOR (PIRITRAMIDE) [Concomitant]
  7. CHLORAL HYDRATE [Concomitant]
  8. NUBAIN [Concomitant]
  9. URBASON (METHYLPEDNISOLONE) [Concomitant]
  10. ELOMEL [Concomitant]
  11. IBUPROFEN [Concomitant]
  12. SUXAMETHONIUM [Concomitant]
  13. LASIX [Concomitant]
  14. PROPOFOL [Suspect]
     Indication: SEDATIVE THERAPY
     Dosage: 7MG/KG/H, INTRAVENOUS (NOT OTHERWISE SPECIFIED)
     Route: 042
     Dates: start: 20111015, end: 20111017
  15. CEFUROXIME ASTRO (CEFUROXIME SODIUM) [Concomitant]
  16. MIDAZOLAM [Concomitant]

REACTIONS (7)
  - HAEMODIALYSIS [None]
  - METABOLIC DISORDER [None]
  - RIGHT VENTRICULAR FAILURE [None]
  - CARDIAC ARREST [None]
  - RHABDOMYOLYSIS [None]
  - PROPOFOL INFUSION SYNDROME [None]
  - ANURIA [None]
